FAERS Safety Report 6470073-3 (Version None)
Quarter: 2009Q4

REPORT INFORMATION
  Report Type: 
  Country: None (occurrence: None)
  Receive Date: 20091203
  Receipt Date: 20091126
  Transmission Date: 20100525
  Serious: Yes (Death)
  Sender: FDA-Public Use
  Company Number: JP-GENENTECH-295029

PATIENT
  Sex: Male

DRUGS (1)
  1. GRTPA [Suspect]
     Indication: CEREBRAL INFARCTION
     Dosage: UNK
     Route: 042

REACTIONS (1)
  - ARTERIAL RUPTURE [None]
